FAERS Safety Report 5302751-3 (Version None)
Quarter: 2007Q2

REPORT INFORMATION
  Report Type: 
  Country: None (occurrence: None)
  Receive Date: 20070419
  Receipt Date: 20070417
  Transmission Date: 20071010
  Serious: Yes (Hospitalization)
  Sender: FDA-Public Use
  Company Number: CH-PFIZER INC-2007030170

PATIENT
  Age: 70 Year
  Sex: Male

DRUGS (2)
  1. NORVASC [Suspect]
     Dosage: FREQ:ONCE DAILY
     Route: 048
  2. VALSARTAN AND HYDROCHLOROTHIAZIDE [Suspect]
     Route: 048

REACTIONS (1)
  - GRANULOMATOUS LIVER DISEASE [None]
